FAERS Safety Report 7084113-4 (Version None)
Quarter: 2010Q4

REPORT INFORMATION
  Report Type: 
  Country: None (occurrence: None)
  Receive Date: 20101104
  Receipt Date: 20101021
  Transmission Date: 20110411
  Serious: Yes (Hospitalization)
  Sender: FDA-Public Use
  Company Number: DE-AMGEN-DEUCT2010000895

PATIENT

DRUGS (2)
  1. ENBREL [Suspect]
     Indication: RHEUMATOID ARTHRITIS
     Dosage: 50 MG, QWK
     Route: 058
     Dates: start: 20030101
  2. PREDNISOLONE [Concomitant]
     Dosage: 20 MG, FREQUENCY UNKNOWN
     Route: 048

REACTIONS (1)
  - KNEE ARTHROPLASTY [None]
